FAERS Safety Report 11825798 (Version 1)
Quarter: 2015Q4

REPORT INFORMATION
  Report Type: Other
  Country: GB (occurrence: GB)
  Receive Date: 20151211
  Receipt Date: 20151211
  Transmission Date: 20160305
  Serious: Yes (Other)
  Sender: FDA-Public Use
  Company Number: GB-CIPLA LTD.-2015GB09340

PATIENT

DRUGS (7)
  1. PARACETAMOL [Concomitant]
     Active Substance: ACETAMINOPHEN
     Dosage: TAKE 1/2 4 TIMES A DAY
     Route: 065
     Dates: start: 20150827, end: 20150910
  2. LORATIDINE [Concomitant]
     Active Substance: LORATADINE
     Dosage: 1 DF, QD
     Route: 065
     Dates: start: 20150701
  3. OMEPRAZOLE. [Concomitant]
     Active Substance: OMEPRAZOLE
     Dosage: 1 DF, QD
     Route: 065
     Dates: start: 20151124
  4. AMLODIPINE [Concomitant]
     Active Substance: AMLODIPINE BESYLATE
     Dosage: 1 DF, QD
     Route: 065
     Dates: start: 20151124
  5. IBUPROFEN. [Concomitant]
     Active Substance: IBUPROFEN
     Dosage: 1 DF, TID
     Route: 065
     Dates: start: 20151124
  6. RAMIPRIL. [Suspect]
     Active Substance: RAMIPRIL
     Indication: HYPERTENSION
     Dosage: UNK
     Route: 048
     Dates: start: 20150210
  7. LOPERAMIDE [Concomitant]
     Active Substance: LOPERAMIDE
     Dosage: UNK, PRN
     Route: 065
     Dates: start: 20150723

REACTIONS (5)
  - Paraesthesia [Recovered/Resolved]
  - Eczema [Unknown]
  - Rash [Unknown]
  - Skin exfoliation [Not Recovered/Not Resolved]
  - Hypoaesthesia [Unknown]

NARRATIVE: CASE EVENT DATE: 20150430
